FAERS Safety Report 20822121 (Version 1)
Quarter: 2022Q2

REPORT INFORMATION
  Report Type: Spontaneous
  Country: US (occurrence: None)
  Receive Date: 20220512
  Receipt Date: 20220512
  Transmission Date: 20220720
  Serious: Yes (Life-Threatening, Other)
  Sender: FDA-Public Use
  Company Number: None

PATIENT
  Age: 30 Year
  Sex: Male
  Weight: 52.65 kg

DRUGS (5)
  1. GABAPENTIN [Suspect]
     Active Substance: GABAPENTIN
     Indication: Self-medication
     Dosage: FREQUENCY : 3 TIMES A DAY;?
     Route: 048
     Dates: start: 20220510, end: 20220511
  2. VALIUM [Concomitant]
     Active Substance: DIAZEPAM
  3. Baclofen Pump System [Concomitant]
  4. Sleep 3 Natures Bounty Nightly Probiotic 10 [Concomitant]
  5. ALEVE [Concomitant]
     Active Substance: NAPROXEN SODIUM

REACTIONS (24)
  - Suicidal ideation [None]
  - Aggression [None]
  - Anxiety [None]
  - Disturbance in attention [None]
  - Depression [None]
  - Psychomotor hyperactivity [None]
  - Restlessness [None]
  - Suspiciousness [None]
  - Constipation [None]
  - Chest pain [None]
  - COVID-19 [None]
  - Mental status changes [None]
  - Amnesia [None]
  - Peripheral swelling [None]
  - Pain in extremity [None]
  - Dysuria [None]
  - Oropharyngeal pain [None]
  - Lip ulceration [None]
  - Mouth ulceration [None]
  - Lymphadenopathy [None]
  - Haemorrhage [None]
  - Seizure [None]
  - Heart rate irregular [None]
  - Abdominal pain upper [None]

NARRATIVE: CASE EVENT DATE: 20220511
